FAERS Safety Report 6295444-X (Version None)
Quarter: 2009Q3

REPORT INFORMATION
  Report Type: 
  Country: None (occurrence: None)
  Receive Date: 20090730
  Receipt Date: 20090720
  Transmission Date: 20100115
  Serious: Yes (Other)
  Sender: FDA-Public Use
  Company Number: GXKR2009BGB08249

PATIENT
  Age: 51 Year
  Sex: Female
  Weight: 59 kg

DRUGS (11)
  1. MIRTAZAPINE [Suspect]
     Indication: DEPRESSION
     Dosage: 15 MG, ORAL
     Route: 048
     Dates: start: 20090423, end: 20090618
  2. AMLODIPINE [Concomitant]
  3. ASPIRIN [Concomitant]
  4. ATENOLOL [Concomitant]
  5. ATORVASTATIN CALCIUM [Concomitant]
  6. GABAPENTN (GABAPENTIN) [Concomitant]
  7. LISINOPRIL [Concomitant]
  8. NUVELLE (ESTRADIOL VALERATE, LEVONORGESTREL) [Concomitant]
  9. OMEPRAZOLE [Concomitant]
  10. PARACETAMOL (PARACETAMOL) [Concomitant]
  11. TRAMADOL HCL [Concomitant]

REACTIONS (2)
  - OEDEMA [None]
  - PROTEINURIA [None]
